FAERS Safety Report 19708270 (Version 1)
Quarter: 2021Q3

REPORT INFORMATION
  Report Type: Spontaneous
  Country: DE (occurrence: DE)
  Receive Date: 20210816
  Receipt Date: 20210816
  Transmission Date: 20211014
  Serious: Yes (Hospitalization)
  Sender: FDA-Public Use
  Company Number: DE-SA-2021SA265392

PATIENT
  Age: 86 Year
  Sex: Female
  Weight: 60 kg

DRUGS (13)
  1. DRONEDARONE [Suspect]
     Active Substance: DRONEDARONE
     Dosage: 400 MG, BID
     Route: 048
  2. APIXABAN [Concomitant]
     Active Substance: APIXABAN
     Dosage: 5 MG, BID
     Route: 048
  3. DUAKLIR GENUAIR [Concomitant]
     Active Substance: ACLIDINIUM BROMIDE\FORMOTEROL FUMARATE
     Dosage: UNK UNK, QD
     Route: 055
  4. ENALAPRIL [Concomitant]
     Active Substance: ENALAPRIL
     Dosage: 10 MG, QD
     Route: 048
  5. LATANOPROST AL [Concomitant]
     Dosage: 5 MG/ML, QD (DROPS)
     Route: 031
  6. LEVOTHYROXINUM NATRICUM [Concomitant]
     Dosage: 75 G, QD
     Route: 048
  7. ISOPTIN [Concomitant]
     Active Substance: VERAPAMIL HYDROCHLORIDE
     Dosage: 80 MG, BID
     Route: 048
  8. INEGY [Concomitant]
     Active Substance: EZETIMIBE\SIMVASTATIN
     Dosage: UNK UNK, QD (10 | 20 MG)
     Route: 048
  9. HYDROCHLOROTHIAZIDE. [Suspect]
     Active Substance: HYDROCHLOROTHIAZIDE
     Dosage: 25 MG, QD
     Route: 048
  10. METAMIZOL [Concomitant]
     Active Substance: METAMIZOLE SODIUM
     Dosage: 500 MG, QD
     Route: 048
  11. DEXPANTHENOL. [Concomitant]
     Active Substance: DEXPANTHENOL
     Dosage: 50 MG/ML, QD (DROPS)
     Route: 031
  12. PANTOPRAZOL [PANTOPRAZOLE] [Concomitant]
     Active Substance: PANTOPRAZOLE
     Dosage: 40 MG, QD
     Route: 048
  13. DORZOLAMIDE [Concomitant]
     Active Substance: DORZOLAMIDE
     Dosage: 20 MG/ML, BID (DROPS)
     Route: 031

REACTIONS (7)
  - Visual impairment [Unknown]
  - Abdominal pain [Unknown]
  - Headache [Unknown]
  - Dyspepsia [Unknown]
  - Vomiting [Unknown]
  - Nausea [Unknown]
  - Dizziness [Unknown]
